FAERS Safety Report 20301719 (Version 1)
Quarter: 2022Q1

REPORT INFORMATION
  Report Type: Spontaneous
  Country: US (occurrence: US)
  Receive Date: 20220105
  Receipt Date: 20220105
  Transmission Date: 20220424
  Serious: No
  Sender: FDA-Public Use
  Company Number: US-LUNDBECK-DKLU3042174

PATIENT
  Age: 23 Year
  Sex: Female

DRUGS (4)
  1. ONFI [Suspect]
     Active Substance: CLOBAZAM
     Indication: Product used for unknown indication
     Route: 065
  2. KEPPRA [Suspect]
     Active Substance: LEVETIRACETAM
     Indication: Product used for unknown indication
     Route: 065
  3. LAMICTAL [Suspect]
     Active Substance: LAMOTRIGINE
     Indication: Product used for unknown indication
     Route: 065
  4. ETHOSUXIMIDE [Suspect]
     Active Substance: ETHOSUXIMIDE
     Indication: Product used for unknown indication
     Route: 065

REACTIONS (1)
  - Pregnancy [Unknown]
